FAERS Safety Report 9851894 (Version 1)
Quarter: 2013Q4

REPORT INFORMATION
  Report Type: Spontaneous
  Country: US (occurrence: None)
  Receive Date: 20131127
  Receipt Date: 20131127
  Transmission Date: 20140711
  Serious: Yes (Other)
  Sender: FDA-Public Use
  Company Number: 223320LEO

PATIENT
  Age: 49 Year
  Sex: Female

DRUGS (1)
  1. PICATO [Suspect]
     Dosage: 1 IN 1 D, DERMAL
     Dates: start: 20130811

REACTIONS (4)
  - Application site erythema [None]
  - Wrong technique in drug usage process [None]
  - Application site vesicles [None]
  - Drug administration error [None]
